FAERS Safety Report 10146202 (Version 2)
Quarter: 2014Q2

REPORT INFORMATION
  Report Type: Spontaneous
  Country: US (occurrence: BR)
  Receive Date: 20140501
  Receipt Date: 20140521
  Transmission Date: 20141212
  Serious: No
  Sender: FDA-Public Use
  Company Number: BR-FRI-1000066946

PATIENT
  Sex: Male

DRUGS (3)
  1. ROFLUMILAST [Suspect]
     Indication: BRONCHIECTASIS
     Route: 048
  2. ANCORON [Concomitant]
     Dosage: 100 MG
  3. ANCORON [Concomitant]
     Dosage: 200 MG

REACTIONS (7)
  - Tachyarrhythmia [Unknown]
  - Off label use [Recovered/Resolved]
  - Incorrect dose administered [Recovered/Resolved]
  - Myalgia [Unknown]
  - Asthenia [Recovered/Resolved]
  - Diarrhoea [Recovered/Resolved]
  - Abdominal pain [Recovered/Resolved]
